FAERS Safety Report 20839796 (Version 1)
Quarter: 2022Q2

REPORT INFORMATION
  Report Type: Spontaneous
  Country: US (occurrence: None)
  Receive Date: 20220516
  Receipt Date: 20220516
  Transmission Date: 20220721
  Serious: No
  Sender: FDA-Public Use
  Company Number: None

PATIENT
  Age: 66 Year
  Sex: Female
  Weight: 50.8 kg

DRUGS (5)
  1. VERZENIO [Suspect]
     Active Substance: ABEMACICLIB
     Indication: Breast cancer female
     Dosage: FREQUENCY : TWICE A DAY;?
     Route: 048
     Dates: start: 20220404
  2. IBUPROFEN [Concomitant]
     Active Substance: IBUPROFEN
  3. FASLODEX [Concomitant]
     Active Substance: FULVESTRANT
  4. LEVOTHYROXINE [Concomitant]
     Active Substance: LEVOTHYROXINE
  5. PERJETA [Concomitant]
     Active Substance: PERTUZUMAB

REACTIONS (1)
  - Platelet count decreased [None]
